FAERS Safety Report 9227783 (Version 2)
Quarter: 2013Q2

REPORT INFORMATION
  Report Type: Spontaneous
  Country: MX (occurrence: MX)
  Receive Date: 20130412
  Receipt Date: 20130423
  Transmission Date: 20140414
  Serious: Yes (Hospitalization, Other)
  Sender: FDA-Public Use
  Company Number: PHHY2013MX035162

PATIENT
  Age: 64 Year
  Sex: Female

DRUGS (2)
  1. TRILEPTAL [Suspect]
     Indication: EPILEPSY
     Dosage: 300 MG, BID
     Route: 048
     Dates: start: 201303
  2. LOSARTAN [Concomitant]
     Dosage: 1 UKN, DAILY
     Dates: start: 2008

REACTIONS (2)
  - Arterial disorder [Not Recovered/Not Resolved]
  - Epilepsy [Not Recovered/Not Resolved]
